FAERS Safety Report 9179223 (Version 2)
Quarter: 2013Q2

REPORT INFORMATION
  Report Type: Spontaneous
  Country: US (occurrence: US)
  Receive Date: 20130321
  Receipt Date: 20130611
  Transmission Date: 20140414
  Serious: Yes (Hospitalization)
  Sender: FDA-Public Use
  Company Number: US-B.I. PHARMACEUTICALS,INC./RIDGEFIELD-2013-BI-06755BP

PATIENT
  Age: 60 Year
  Sex: Female
  Weight: 120 kg

DRUGS (11)
  1. SPIRIVA [Suspect]
     Indication: CHRONIC OBSTRUCTIVE PULMONARY DISEASE
     Dosage: 18 MCG
     Route: 055
     Dates: start: 201101
  2. SYMBICORT [Concomitant]
     Indication: CHRONIC OBSTRUCTIVE PULMONARY DISEASE
     Route: 055
  3. MUCINEX [Concomitant]
     Indication: INCREASED UPPER AIRWAY SECRETION
     Dosage: 1200 MG
     Route: 048
  4. TRAMADOL [Concomitant]
     Indication: PAIN
     Dosage: 200 MG
     Route: 048
  5. MULTAQ [Concomitant]
     Indication: ARRHYTHMIA
     Dosage: 800 MG
     Route: 048
  6. DILTIAZEM [Concomitant]
     Indication: HYPERTENSION
     Dosage: 300 MG
     Route: 048
  7. BENZONATATE [Concomitant]
     Dosage: 200 MG
     Route: 048
  8. POTASSIUM [Concomitant]
     Dosage: 80 MEQ
     Route: 048
  9. PROVASTATIN [Concomitant]
     Indication: BLOOD CHOLESTEROL INCREASED
     Dosage: 20 MG
     Route: 048
  10. CALCIUM [Concomitant]
     Dosage: 1200 MG
     Route: 048
  11. WARFARIN [Concomitant]
     Indication: PULMONARY EMBOLISM
     Dosage: 4 MG
     Route: 048

REACTIONS (5)
  - Pneumonia [Recovered/Resolved]
  - Pneumonia [Recovered/Resolved]
  - Pulmonary embolism [Recovered/Resolved]
  - Chronic obstructive pulmonary disease [Recovered/Resolved]
  - Pneumonia staphylococcal [Recovered/Resolved]
